FAERS Safety Report 4372871-9 (Version None)
Quarter: 2004Q2

REPORT INFORMATION
  Report Type: 
  Country: None (occurrence: None)
  Receive Date: 20040603
  Receipt Date: 20040518
  Transmission Date: 20050107
  Serious: Yes (Other)
  Sender: FDA-Public Use
  Company Number: US_0405103249

PATIENT
  Age: 79 Year
  Sex: Female

DRUGS (2)
  1. EVISTA [Suspect]
     Dosage: 60 MG/1 DAY
  2. FOSAMAX [Concomitant]

REACTIONS (2)
  - BODY HEIGHT DECREASED [None]
  - FRACTURE [None]
